FAERS Safety Report 5046918-0 (Version None)
Quarter: 2006Q2

REPORT INFORMATION
  Report Type: 
  Country: None (occurrence: None)
  Receive Date: 20060630
  Receipt Date: 20060619
  Transmission Date: 20061013
  Serious: Yes (Hospitalization)
  Sender: FDA-Public Use
  Company Number: HQWYE282820JUN06

PATIENT
  Age: 27 Year
  Sex: Female

DRUGS (8)
  1. CYCLOSPORINE, CONTROL FOR SIROLIMUS (CYCLOSPORINE, CONTROL FOR SIROLIM [Suspect]
     Indication: PROPHYLAXIS AGAINST TRANSPLANT REJECTION
  2. MYCOPHENOLATE MOFETIL [Concomitant]
  3. ISONIAZID [Concomitant]
  4. VITAMIN B6 [Concomitant]
  5. COTRIM [Concomitant]
  6. DILTIAZEM HCL [Concomitant]
  7. PREDNISONE [Concomitant]
  8. METHYLPREDNISOLONE [Concomitant]

REACTIONS (1)
  - KIDNEY TRANSPLANT REJECTION [None]
